FAERS Safety Report 13078297 (Version 1)
Quarter: 2017Q1

REPORT INFORMATION
  Report Type: Other
  Country: US (occurrence: US)
  Receive Date: 20170102
  Receipt Date: 20170102
  Transmission Date: 20170428
  Serious: Yes (Hospitalization)
  Sender: FDA-Public Use
  Company Number: US-DEXPHARM-20162498

PATIENT
  Age: 4 Month
  Sex: Female

DRUGS (1)
  1. OMEPRAZOLE- NOT DEXCEL^S PRODUCT [Suspect]
     Active Substance: OMEPRAZOLE

REACTIONS (21)
  - Toxicity to various agents [Recovered/Resolved]
  - Crying [None]
  - Pallor [None]
  - Hyperkalaemia [None]
  - Seizure [None]
  - Dyspnoea [None]
  - Hypothermia [None]
  - Medication error [None]
  - Depressed level of consciousness [None]
  - Eye movement disorder [None]
  - Dyskinesia [None]
  - Encephalopathy [None]
  - Infarction [None]
  - Irregular breathing [None]
  - Metabolic acidosis [None]
  - Hyporeflexia [None]
  - Apnoea [None]
  - Pupillary reflex impaired [None]
  - Product deposit [None]
  - Hypotonia [None]
  - Product reconstitution issue [None]
